FAERS Safety Report 20588177 (Version 1)
Quarter: 2022Q1

REPORT INFORMATION
  Report Type: Spontaneous
  Country: US (occurrence: US)
  Receive Date: 20220314
  Receipt Date: 20220314
  Transmission Date: 20220424
  Serious: No
  Sender: FDA-Public Use
  Company Number: US-Global Blood Therapeutics Inc-US-GBT-22-00050

PATIENT
  Age: 59 Year
  Sex: Female

DRUGS (2)
  1. OXBRYTA [Suspect]
     Active Substance: VOXELOTOR
     Indication: Product used for unknown indication
     Route: 048
  2. HUMAN RED BLOOD CELL [Concomitant]
     Active Substance: HUMAN RED BLOOD CELL
     Indication: Product used for unknown indication
     Dosage: NOT PROVIDED
     Dates: start: 20220214, end: 20220214

REACTIONS (1)
  - Haemoglobin decreased [Unknown]

NARRATIVE: CASE EVENT DATE: 20220102
